FAERS Safety Report 14763325 (Version 5)
Quarter: 2018Q3

REPORT INFORMATION
  Report Type: Spontaneous
  Country: NL (occurrence: NL)
  Receive Date: 20180416
  Receipt Date: 20180821
  Transmission Date: 20181010
  Serious: Yes (Hospitalization, Other)
  Sender: FDA-Public Use
  Company Number: PHHY2017NL191641

PATIENT
  Age: 62 Year
  Sex: Male

DRUGS (10)
  1. FENTANYL. [Interacting]
     Active Substance: FENTANYL
     Indication: PAIN
     Dosage: 75 MG/H, UNK
     Route: 062
  2. DEXAMETHASONE. [Interacting]
     Active Substance: DEXAMETHASONE
     Indication: PAIN
     Dosage: 16 MG, QD
     Route: 065
  3. AMITRIPTYLINE [Suspect]
     Active Substance: AMITRIPTYLINE
     Indication: DEPRESSION
  4. FENTANYL. [Interacting]
     Active Substance: FENTANYL
     Indication: METASTASES TO BONE
  5. ENZALUTAMIDE [Interacting]
     Active Substance: ENZALUTAMIDE
     Indication: HORMONE-REFRACTORY PROSTATE CANCER
     Dosage: UNK
     Route: 065
  6. AMITRIPTYLINE [Suspect]
     Active Substance: AMITRIPTYLINE
     Indication: METASTASES TO BONE
     Route: 065
  7. AMITRIPTYLINE [Suspect]
     Active Substance: AMITRIPTYLINE
     Indication: PAIN
  8. PREGABALIN. [Interacting]
     Active Substance: PREGABALIN
     Indication: METASTASES TO BONE
     Dosage: UNK
     Route: 062
  9. PREGABALIN. [Interacting]
     Active Substance: PREGABALIN
     Indication: PAIN
  10. DEXAMETHASONE. [Interacting]
     Active Substance: DEXAMETHASONE
     Indication: METASTASES TO BONE

REACTIONS (8)
  - Labelled drug-drug interaction medication error [Recovering/Resolving]
  - Thoracic vertebral fracture [Unknown]
  - Drug ineffective [Unknown]
  - Pain [Unknown]
  - Cervical vertebral fracture [Unknown]
  - Spinal cord compression [Unknown]
  - Malignant neoplasm progression [Unknown]
  - Drug interaction [Recovering/Resolving]
